FAERS Safety Report 6016666-9 (Version None)
Quarter: 2008Q4

REPORT INFORMATION
  Report Type: 
  Country: None (occurrence: None)
  Receive Date: 20081222
  Receipt Date: 20081218
  Transmission Date: 20090506
  Serious: Yes (Death, Other)
  Sender: FDA-Public Use
  Company Number: PHHY2008FI31020

PATIENT
  Sex: Male

DRUGS (10)
  1. LEPONEX [Suspect]
     Indication: SCHIZOPHRENIA
     Dosage: UNK
  2. ABILIFY [Suspect]
     Indication: PSYCHOTIC DISORDER
     Dosage: UNK
     Dates: end: 20080614
  3. HALOPERIDOL [Suspect]
     Indication: PSYCHOTIC DISORDER
     Dosage: UNK
  4. ZYPREXA [Suspect]
     Indication: PSYCHOTIC DISORDER
  5. CISORDINOL-ACUTARD [Suspect]
     Indication: PSYCHOTIC DISORDER
  6. OMEPRAZOLE [Suspect]
     Dosage: 40 MG, QD
     Route: 048
     Dates: start: 20080614
  7. THYROXIN [Suspect]
     Dosage: 1.5 DF, QD
     Dates: start: 20080514
  8. ATIVAN [Suspect]
     Dosage: 4 MG, BID, PRN
     Route: 030
     Dates: start: 20080614
  9. TENOX [Concomitant]
  10. PROPRAL [Concomitant]

REACTIONS (8)
  - CARDIAC ARREST [None]
  - CATATONIA [None]
  - EATING DISORDER [None]
  - ELECTROCARDIOGRAM QT PROLONGED [None]
  - INFECTION [None]
  - MYOCARDIAL FIBROSIS [None]
  - THYROID DISORDER [None]
  - VASCULAR OCCLUSION [None]
